FAERS Safety Report 21102716 (Version 1)
Quarter: 2022Q3

REPORT INFORMATION
  Report Type: Spontaneous
  Country: IL (occurrence: IL)
  Receive Date: 20220720
  Receipt Date: 20220720
  Transmission Date: 20221026
  Serious: Yes (Other)
  Sender: FDA-Public Use
  Company Number: IL-CELLTRION INC.-2022IL011284

PATIENT

DRUGS (1)
  1. INFLIXIMAB [Suspect]
     Active Substance: INFLIXIMAB
     Indication: Product used for unknown indication
     Dosage: UNK
     Route: 042
     Dates: start: 20220405

REACTIONS (3)
  - Musculoskeletal chest pain [Unknown]
  - Chills [Unknown]
  - Chest pain [Unknown]

NARRATIVE: CASE EVENT DATE: 20220405
